FAERS Safety Report 6220403-2 (Version None)
Quarter: 2009Q2

REPORT INFORMATION
  Report Type: 
  Country: None (occurrence: None)
  Receive Date: 20090610
  Receipt Date: 20090527
  Transmission Date: 20091009
  Serious: Yes (Hospitalization)
  Sender: FDA-Public Use
  Company Number: AR-ELI_LILLY_AND_COMPANY-AR200905004729

PATIENT
  Sex: Male
  Weight: 2.7 kg

DRUGS (2)
  1. OLANZAPINE [Suspect]
     Indication: SCHIZOPHRENIA
     Dosage: 5 MG, DAILY (1/D)
     Route: 064
     Dates: end: 20080916
  2. TRIFLUOPERAZINE [Concomitant]
     Dosage: 5 MG, DAILY (1/D)
     Route: 064

REACTIONS (1)
  - NEONATAL ASPIRATION [None]
